FAERS Safety Report 11136989 (Version 2)
Quarter: 2015Q2

REPORT INFORMATION
  Report Type: Report from Study
  Country: AT (occurrence: AT)
  Receive Date: 20150526
  Receipt Date: 20150605
  Transmission Date: 20150821
  Serious: Yes (Hospitalization)
  Sender: FDA-Public Use
  Company Number: AT-INCYTE CORPORATION-2015IN001720

PATIENT
  Age: 74 Year
  Sex: Male
  Weight: 83 kg

DRUGS (3)
  1. JAKAFI [Suspect]
     Active Substance: RUXOLITINIB
     Indication: MYELOFIBROSIS
     Dosage: 30 MG, QD
     Route: 065
     Dates: start: 20130628, end: 20130927
  2. JAKAFI [Suspect]
     Active Substance: RUXOLITINIB
     Dosage: 10 MG, QD
     Route: 065
     Dates: start: 20131004, end: 20140901
  3. JAKAFI [Suspect]
     Active Substance: RUXOLITINIB
     Dosage: 30 MG, QD
     Route: 065
     Dates: start: 20140902

REACTIONS (6)
  - Squamous cell carcinoma [Unknown]
  - Impaired healing [Unknown]
  - Skin lesion [Unknown]
  - Pain [Unknown]
  - Bowen^s disease [Unknown]
  - Second primary malignancy [Unknown]

NARRATIVE: CASE EVENT DATE: 20150226
